FAERS Safety Report 9249682 (Version 1)
Quarter: 2013Q2

REPORT INFORMATION
  Report Type: Report from Study
  Country: US (occurrence: US)
  Receive Date: 20130423
  Receipt Date: 20130423
  Transmission Date: 20140414
  Serious: Yes (Life-Threatening, Hospitalization)
  Sender: FDA-Public Use
  Company Number: US-TEVA-380835USA

PATIENT
  Age: 72 Year
  Sex: Female
  Weight: 65.38 kg

DRUGS (9)
  1. CUSTIRSEN [Suspect]
     Indication: SQUAMOUS CELL CARCINOMA OF LUNG
     Dosage: DAY 1, 8 AND 15
     Route: 042
     Dates: start: 20121210, end: 20121218
  2. PACLITAXEL [Suspect]
     Indication: SQUAMOUS CELL CARCINOMA OF LUNG
     Dosage: DAY 1
     Route: 042
     Dates: start: 20121127, end: 20121218
  3. CARBOPLATIN [Suspect]
     Indication: SQUAMOUS CELL CARCINOMA OF LUNG
     Dosage: AUC 6- DAY 1
     Route: 042
     Dates: start: 20121127, end: 20121218
  4. CYMBALTA [Concomitant]
     Indication: DEPRESSION
     Dosage: 60 MILLIGRAM DAILY;
     Route: 048
     Dates: start: 20121108
  5. COMPAZINE [Concomitant]
     Indication: NAUSEA
     Route: 048
     Dates: start: 200910
  6. IMODIUM [Concomitant]
     Indication: DIARRHOEA
     Route: 048
     Dates: start: 2001
  7. IMODIUM [Concomitant]
     Route: 048
     Dates: start: 2001
  8. SPIRIVA [Concomitant]
     Indication: CHRONIC OBSTRUCTIVE PULMONARY DISEASE
     Dosage: 1-2 PUFFS
     Route: 055
     Dates: start: 201203
  9. ALBUTEROL [Concomitant]
     Indication: CHRONIC OBSTRUCTIVE PULMONARY DISEASE
     Dosage: 1-2 PUFFS
     Route: 055
     Dates: start: 201203

REACTIONS (1)
  - Acute respiratory failure [Recovered/Resolved]
